FAERS Safety Report 5431981-5 (Version None)
Quarter: 2007Q3

REPORT INFORMATION
  Report Type: 
  Country: None (occurrence: None)
  Receive Date: 20070830
  Receipt Date: 20070819
  Transmission Date: 20080115
  Serious: Yes (Other)
  Sender: FDA-Public Use
  Company Number: US-PFIZER INC-2007069791

PATIENT
  Sex: Female
  Weight: 63.5 kg

DRUGS (3)
  1. CHANTIX [Suspect]
     Indication: SMOKING CESSATION THERAPY
  2. BUSPIRONE [Concomitant]
     Indication: ANXIETY
  3. VICODIN [Concomitant]

REACTIONS (3)
  - ANXIETY [None]
  - HOT FLUSH [None]
  - INJECTION [None]
